FAERS Safety Report 21742051 (Version 1)
Quarter: 2022Q4

REPORT INFORMATION
  Report Type: Spontaneous
  Country: US (occurrence: None)
  Receive Date: 20221215
  Receipt Date: 20221215
  Transmission Date: 20230113
  Serious: No
  Sender: FDA-Public Use
  Company Number: None

PATIENT
  Age: 45 Year
  Sex: Male

DRUGS (1)
  1. INFLECTRA [Suspect]
     Active Substance: INFLIXIMAB-DYYB
     Dosage: OTHER FREQUENCY : OTHER;?
     Route: 042
     Dates: start: 202209

REACTIONS (3)
  - Product prescribing error [None]
  - Inappropriate schedule of product administration [None]
  - Wrong dose [None]

NARRATIVE: CASE EVENT DATE: 20221215
